FAERS Safety Report 16335215 (Version 4)
Quarter: 2020Q1

REPORT INFORMATION
  Report Type: Spontaneous
  Country: FR (occurrence: FR)
  Receive Date: 20190521
  Receipt Date: 20200127
  Transmission Date: 20200409
  Serious: Yes (Other)
  Sender: FDA-Public Use
  Company Number: FR-GILEAD-2019-0408889

PATIENT
  Age: 50 Year
  Sex: Male

DRUGS (1)
  1. BIKTARVY [Suspect]
     Active Substance: BICTEGRAVIR SODIUM\EMTRICITABINE\TENOFOVIR ALAFENAMIDE FUMARATE
     Indication: HIV INFECTION
     Dosage: 50/200/25
     Route: 048
     Dates: start: 20181217

REACTIONS (4)
  - Crohn^s disease [Unknown]
  - Therapeutic response decreased [Unknown]
  - Viral load increased [Recovering/Resolving]
  - Pneumocystis jirovecii pneumonia [Recovered/Resolved]
